FAERS Safety Report 4550549-6 (Version None)
Quarter: 2004Q4

REPORT INFORMATION
  Report Type: 
  Country: None (occurrence: None)
  Receive Date: 20041227
  Receipt Date: 20041118
  Transmission Date: 20050328
  Serious: No
  Sender: FDA-Public Use
  Company Number: 04P-163-0281176-00

PATIENT
  Age: 51 Year
  Sex: Female
  Weight: 92.5338 kg

DRUGS (5)
  1. HUMIRA [Suspect]
     Indication: RHEUMATOID ARTHRITIS
     Dosage: 40 MG, 1 IN 2 WK, SUBCUTANEOUS
     Route: 058
     Dates: start: 20030620, end: 20040101
  2. AMITRIPTYLINE [Concomitant]
  3. ESTROTEST [Concomitant]
  4. IBUPROFEN [Concomitant]
  5. HYDROXYCHLOROQUINE PHOSPHATE [Concomitant]

REACTIONS (1)
  - SINUSITIS [None]
